FAERS Safety Report 9760208 (Version 1)
Quarter: 2013Q4

REPORT INFORMATION
  Report Type: Spontaneous
  Country: US (occurrence: US)
  Receive Date: 20131216
  Receipt Date: 20131216
  Transmission Date: 20140711
  Serious: No
  Sender: FDA-Public Use
  Company Number: US-PFIZER INC-2013359109

PATIENT
  Age: 59 Year
  Sex: Female

DRUGS (5)
  1. XELJANZ [Suspect]
     Indication: RHEUMATOID ARTHRITIS
     Dosage: 5 MG, 2X/DAY
     Route: 048
     Dates: start: 2013
  2. ARAVA [Concomitant]
     Dosage: UNK
  3. TRAVATAN [Concomitant]
     Dosage: UNK
     Route: 047
  4. ZETONNA [Concomitant]
     Dosage: UNK
     Route: 045
  5. HYDROXYCHLOROQUINE [Concomitant]
     Dosage: UNK

REACTIONS (1)
  - Alanine aminotransferase increased [Unknown]
